FAERS Safety Report 23298020 (Version 1)
Quarter: 2023Q4

REPORT INFORMATION
  Report Type: Spontaneous
  Country: CA (occurrence: CA)
  Receive Date: 20231214
  Receipt Date: 20231214
  Transmission Date: 20240110
  Serious: Yes (Hospitalization, Other)
  Sender: FDA-Public Use
  Company Number: CA-FreseniusKabi-FK202320369

PATIENT
  Sex: Male

DRUGS (15)
  1. MORPHINE SULFATE [Suspect]
     Active Substance: MORPHINE SULFATE
     Indication: Product used for unknown indication
     Dosage: FOA: NOT SPECIFIED
     Route: 065
  2. ACETAMINOPHEN\OXYCODONE HYDROCHLORIDE [Suspect]
     Active Substance: ACETAMINOPHEN\OXYCODONE HYDROCHLORIDE
     Indication: Product used for unknown indication
     Route: 065
  3. ACETAMINOPHEN\OXYCODONE HYDROCHLORIDE\OXYCODONE TEREPHTHALATE [Suspect]
     Active Substance: ACETAMINOPHEN\OXYCODONE HYDROCHLORIDE\OXYCODONE TEREPHTHALATE
     Indication: Analgesic therapy
     Route: 065
  4. DILAUDID [Suspect]
     Active Substance: HYDROMORPHONE HYDROCHLORIDE
     Indication: Analgesic therapy
     Dosage: FOA: NOT SPECIFIED
     Route: 048
  5. MS CONTIN [Suspect]
     Active Substance: MORPHINE SULFATE
     Indication: Analgesic therapy
     Dosage: FOA: TABLET (EXTENDED-RELEASE)
     Route: 048
  6. MS CONTIN [Suspect]
     Active Substance: MORPHINE SULFATE
     Indication: Sleep disorder
     Dosage: FOA: PROLONGED-RELEASE TABLET?2 REGIMENS
     Route: 048
  7. MS CONTIN [Suspect]
     Active Substance: MORPHINE SULFATE
     Indication: Pain
     Dosage: FOA: PROLONGED-RELEASE TABLET
     Route: 048
  8. ACETAMINOPHEN;ORPHENADRINE CITRATE [Concomitant]
     Indication: Pain
     Dosage: 75MCG
     Route: 061
  9. DESIPRAMINE [Concomitant]
     Active Substance: DESIPRAMINE
     Indication: Product used for unknown indication
     Dosage: FOA: TABLET
     Route: 065
  10. DOXEPIN [Concomitant]
     Active Substance: DOXEPIN
     Indication: Sleep disorder
     Dosage: FOA: CAPSULE
     Route: 065
  11. DOXEPIN [Concomitant]
     Active Substance: DOXEPIN
     Indication: Pain
  12. ELAVIL [Concomitant]
     Active Substance: AMITRIPTYLINE HYDROCHLORIDE
     Indication: Analgesic therapy
     Route: 065
  13. LERITINE /00061401/ [Concomitant]
     Indication: Analgesic therapy
     Route: 065
  14. LEVO-DROMORAN [Concomitant]
     Active Substance: LEVORPHANOL TARTRATE
     Indication: Analgesic therapy
     Dosage: FOA: NOT SPECIFIED
     Route: 065
  15. TORADOL [Concomitant]
     Active Substance: KETOROLAC TROMETHAMINE
     Indication: Analgesic therapy
     Dosage: FOA: NOT SPECIFIED
     Route: 065

REACTIONS (8)
  - Affective disorder [Unknown]
  - Alcohol abuse [Unknown]
  - Depression suicidal [Unknown]
  - Drug dependence [Unknown]
  - Drug withdrawal syndrome [Unknown]
  - Overdose [Unknown]
  - Panic attack [Unknown]
  - Suicide attempt [Unknown]
